FAERS Safety Report 5598638-1 (Version None)
Quarter: 2007Q4

REPORT INFORMATION
  Report Type: 
  Country: None (occurrence: None)
  Receive Date: 20071226
  Receipt Date: 20071017
  Transmission Date: 20080405
  Serious: No
  Sender: FDA-Public Use
  Company Number: 2007PV033592

PATIENT
  Age: 59 Year
  Sex: Female
  Weight: 131.5431 kg

DRUGS (6)
  1. SYMLIN [Suspect]
     Indication: TYPE 2 DIABETES MELLITUS
     Dosage: 90, 60, MCG, TID, SC
     Route: 058
     Dates: start: 20060101, end: 20060101
  2. SYMLIN [Suspect]
     Indication: TYPE 2 DIABETES MELLITUS
     Dosage: 90, 60, MCG, TID, SC
     Route: 058
     Dates: end: 20070701
  3. SYMLIN [Suspect]
     Indication: TYPE 2 DIABETES MELLITUS
     Dosage: 90, 60, MCG, TID, SC
     Route: 058
     Dates: start: 20070701
  4. NOVOLOG [Concomitant]
  5. LANTUS [Concomitant]
  6. METFORMIN [Concomitant]

REACTIONS (2)
  - NAUSEA [None]
  - SUDDEN ONSET OF SLEEP [None]
